FAERS Safety Report 10155673 (Version 2)
Quarter: 2014Q3

REPORT INFORMATION
  Report Type: Spontaneous
  Country: BR (occurrence: BR)
  Receive Date: 20140506
  Receipt Date: 20140722
  Transmission Date: 20150326
  Serious: Yes (Other)
  Sender: FDA-Public Use
  Company Number: BR-GLAXOSMITHKLINE-B0990980A

PATIENT
  Sex: Female
  Weight: 57 kg

DRUGS (9)
  1. RYTMONORM [Suspect]
     Active Substance: PROPAFENONE
     Indication: ARRHYTHMIA
     Dosage: 300MG IN THE MORNING
     Route: 048
     Dates: start: 2009
  2. LEXOTAN [Concomitant]
     Active Substance: BROMAZEPAM
     Indication: INSOMNIA
     Dosage: 30MG AT NIGHT
     Route: 048
     Dates: start: 2004
  3. OMEPRAZOLE. [Concomitant]
     Active Substance: OMEPRAZOLE
     Dosage: 20MG IN THE MORNING
     Route: 048
     Dates: start: 2004
  4. SIMVASTATIN. [Concomitant]
     Active Substance: SIMVASTATIN
     Indication: BLOOD GLUCOSE
     Dosage: 2TAB PER DAY
     Route: 048
     Dates: start: 2010, end: 2013
  5. EZETIMIBE. [Concomitant]
     Active Substance: EZETIMIBE
     Indication: BLOOD GLUCOSE
     Dosage: 20MG PER DAY
     Route: 048
  6. ESCITALOPRAM OXALATE. [Concomitant]
     Active Substance: ESCITALOPRAM OXALATE
     Indication: DEPRESSION
     Dosage: 10MG IN THE MORNING
     Route: 048
     Dates: start: 20140406
  7. TIMOLOL MALEATE. [Concomitant]
     Active Substance: TIMOLOL MALEATE
     Indication: OPHTHALMOLOGIC TREATMENT
     Dosage: .2MG TWICE PER DAY
     Route: 047
     Dates: start: 2004
  8. METFORMIN HYDROCHLORIDE. [Concomitant]
     Active Substance: METFORMIN HYDROCHLORIDE
     Indication: BLOOD GLUCOSE
     Dosage: 500MG TWICE PER DAY
     Route: 048
     Dates: start: 2010
  9. ASA [Concomitant]
     Active Substance: ASPIRIN
     Indication: HAEMORRHAGE PROPHYLAXIS
     Dosage: 2TAB PER DAY
     Route: 048
     Dates: start: 2004

REACTIONS (8)
  - Retinal disorder [Recovering/Resolving]
  - Speech disorder [Unknown]
  - Depression [Recovering/Resolving]
  - Respiratory disorder [Not Recovered/Not Resolved]
  - Choking [Unknown]
  - Arrhythmia [Not Recovered/Not Resolved]
  - Hearing impaired [Recovering/Resolving]
  - Fatigue [Not Recovered/Not Resolved]

NARRATIVE: CASE EVENT DATE: 2010
